FAERS Safety Report 7585773-1 (Version None)
Quarter: 2011Q3

REPORT INFORMATION
  Report Type: 
  Country: None (occurrence: None)
  Receive Date: 20110701
  Receipt Date: 20110621
  Transmission Date: 20111222
  Serious: Yes (Other)
  Sender: FDA-Public Use
  Company Number: US-BAYER-2011-003057

PATIENT
  Age: 46 Year
  Sex: Female
  Weight: 90.703 kg

DRUGS (7)
  1. CEPHALEXIN [Concomitant]
  2. METRONIDAZOLE [Concomitant]
  3. YASMIN [Suspect]
     Indication: PREMENSTRUAL SYNDROME
  4. TERCONAZOLE [Concomitant]
  5. CLINDAMYCIN [Concomitant]
  6. LEVAQUIN [Concomitant]
  7. YASMIN [Suspect]
     Indication: CONTRACEPTION
     Dosage: 1 UNK, UNK
     Dates: start: 20040301, end: 20081101

REACTIONS (2)
  - PAIN [None]
  - THROMBOSED VARICOSE VEIN [None]
